FAERS Safety Report 4741759-3 (Version None)
Quarter: 2005Q3

REPORT INFORMATION
  Report Type: 
  Country: None (occurrence: None)
  Receive Date: 20050808
  Receipt Date: 20050725
  Transmission Date: 20060218
  Serious: Yes (Hospitalization)
  Sender: FDA-Public Use
  Company Number: EWC050644680

PATIENT
  Age: 29 Year
  Sex: Female

DRUGS (1)
  1. FLUOXETINE [Suspect]
     Indication: DEPRESSION
     Dates: start: 20040401, end: 20040528

REACTIONS (2)
  - HYPERSENSITIVITY [None]
  - WHITE BLOOD CELL COUNT INCREASED [None]
